FAERS Safety Report 18607897 (Version 3)
Quarter: 2021Q3

REPORT INFORMATION
  Report Type: Report from Study
  Country: ES (occurrence: ES)
  Receive Date: 20201211
  Receipt Date: 20210721
  Transmission Date: 20211014
  Serious: Yes (Hospitalization, Other)
  Sender: FDA-Public Use
  Company Number: ES-SHIRE-ES202024178

PATIENT
  Age: 8 Year
  Sex: Male

DRUGS (12)
  1. TEDUGLUTIDE [Suspect]
     Active Substance: TEDUGLUTIDE
     Dosage: 1.200 MILLIGRAM (0.0500 MG/KG), QD
     Route: 065
     Dates: start: 20190827, end: 20191211
  2. NITROUS OXIDE. [Concomitant]
     Active Substance: NITROUS OXIDE
     Indication: SEDATIVE THERAPY
     Dosage: UNK, QD
     Route: 050
     Dates: start: 20201113, end: 20201113
  3. TEDUGLUTIDE [Suspect]
     Active Substance: TEDUGLUTIDE
     Indication: SHORT-BOWEL SYNDROME
     Dosage: 1.2 MILLIGRAM
     Route: 065
     Dates: start: 20190827, end: 20191211
  4. TEDUGLUTIDE [Suspect]
     Active Substance: TEDUGLUTIDE
     Indication: SHORT-BOWEL SYNDROME
     Dosage: 1.2 MILLIGRAM
     Route: 065
     Dates: start: 20190827, end: 20191211
  5. TEDUGLUTIDE [Suspect]
     Active Substance: TEDUGLUTIDE
     Indication: SHORT-BOWEL SYNDROME
     Dosage: 1.2 MILLIGRAM
     Route: 065
     Dates: start: 20190827, end: 20191211
  6. TEDUGLUTIDE [Suspect]
     Active Substance: TEDUGLUTIDE
     Dosage: 1.200 MILLIGRAM (0.0500 MG/KG), QD
     Route: 065
     Dates: start: 20190827, end: 20191211
  7. TEDUGLUTIDE [Suspect]
     Active Substance: TEDUGLUTIDE
     Dosage: 1.200 MILLIGRAM (0.0500 MG/KG), QD
     Route: 065
     Dates: start: 20190827, end: 20191211
  8. NITROUS OXIDE. [Concomitant]
     Active Substance: NITROUS OXIDE
     Dosage: UNK UNK, QD
     Route: 050
     Dates: start: 20201112, end: 20201112
  9. TEDUGLUTIDE [Suspect]
     Active Substance: TEDUGLUTIDE
     Dosage: 1.200 MILLIGRAM (0.0500 MG/KG), QD
     Route: 065
     Dates: start: 20190827, end: 20191211
  10. TEDUGLUTIDE [Suspect]
     Active Substance: TEDUGLUTIDE
     Indication: SHORT-BOWEL SYNDROME
     Dosage: 1.2 MILLIGRAM
     Route: 065
     Dates: start: 20190827, end: 20191211
  11. NITROUS OXIDE. [Concomitant]
     Active Substance: NITROUS OXIDE
     Dosage: UNK UNK, QD
     Route: 050
     Dates: start: 20200411, end: 20200411
  12. NITROUS OXIDE. [Concomitant]
     Active Substance: NITROUS OXIDE
     Dosage: UNK UNK, QD
     Route: 050
     Dates: start: 20200112, end: 20200112

REACTIONS (4)
  - Vascular device occlusion [Recovered/Resolved]
  - Dysuria [Recovered/Resolved]
  - Colonic lavage [Recovered/Resolved]
  - Proctalgia [Recovered/Resolved]

NARRATIVE: CASE EVENT DATE: 20200411
